FAERS Safety Report 19314154 (Version 1)
Quarter: 2021Q2

REPORT INFORMATION
  Report Type: Spontaneous
  Country: US (occurrence: US)
  Receive Date: 20210527
  Receipt Date: 20210527
  Transmission Date: 20210717
  Serious: Yes (Other)
  Sender: FDA-Public Use
  Company Number: US-GLAXOSMITHKLINE-US2021GSK113563

PATIENT
  Sex: Male

DRUGS (5)
  1. ZANTAC [Suspect]
     Active Substance: RANITIDINE HYDROCHLORIDE
     Dosage: 75 MG
     Route: 065
     Dates: start: 199701, end: 201401
  2. ZANTAC [Suspect]
     Active Substance: RANITIDINE HYDROCHLORIDE
     Dosage: 75 MG
     Route: 065
     Dates: start: 199701, end: 201401
  3. RANITIDINE. [Suspect]
     Active Substance: RANITIDINE
     Dosage: 75 MG
     Route: 065
     Dates: start: 199701, end: 201401
  4. RANITIDINE HYDROCHLORIDE. [Suspect]
     Active Substance: RANITIDINE HYDROCHLORIDE
     Dosage: OCCASIONAL|OVER THE COUNTER
     Route: 065
     Dates: start: 199501, end: 201401
  5. RANITIDINE. [Suspect]
     Active Substance: RANITIDINE
     Dosage: 75 MG
     Route: 065
     Dates: start: 199701, end: 201401

REACTIONS (1)
  - Gastrointestinal carcinoma [Unknown]
